FAERS Safety Report 4580194-8 (Version None)
Quarter: 2005Q1

REPORT INFORMATION
  Report Type: 
  Country: None (occurrence: None)
  Receive Date: 20050127
  Receipt Date: 20040823
  Transmission Date: 20050727
  Serious: No
  Sender: FDA-Public Use
  Company Number: USA030126914

PATIENT
  Age: 4 Year
  Sex: Female
  Weight: 27 kg

DRUGS (3)
  1. STRATTERA [Suspect]
     Indication: ATTENTION DEFICIT/HYPERACTIVITY DISORDER
     Dosage: 70 MG/ 1 DAY
     Dates: start: 20030115
  2. TENEX [Concomitant]
  3. WELLBUTRIN [Concomitant]

REACTIONS (4)
  - AGGRESSION [None]
  - DRUG EFFECT DECREASED [None]
  - IMPULSIVE BEHAVIOUR [None]
  - PRESCRIBED OVERDOSE [None]
